FAERS Safety Report 16312115 (Version 1)
Quarter: 2019Q2

REPORT INFORMATION
  Report Type: Spontaneous
  Country: NL (occurrence: NL)
  Receive Date: 20190515
  Receipt Date: 20190515
  Transmission Date: 20190711
  Serious: Yes (Other)
  Sender: FDA-Public Use
  Company Number: NL-SA-2019SA130350

PATIENT
  Age: 56 Year
  Sex: Male

DRUGS (1)
  1. DUPILUMAB [Suspect]
     Active Substance: DUPILUMAB
     Indication: DERMATITIS ATOPIC
     Dosage: UNK

REACTIONS (7)
  - Eye irritation [Recovered/Resolved]
  - Ciliary hyperaemia [Recovering/Resolving]
  - Conjunctivitis [Recovered/Resolved]
  - Limbal stem cell deficiency [Recovered/Resolved]
  - Corneal degeneration [Recovering/Resolving]
  - Condition aggravated [Recovering/Resolving]
  - Conjunctival hyperaemia [Recovered/Resolved]
